FAERS Safety Report 11396182 (Version 1)
Quarter: 2015Q3

REPORT INFORMATION
  Report Type: Spontaneous
  Country: US (occurrence: US)
  Receive Date: 20150819
  Receipt Date: 20150819
  Transmission Date: 20151125
  Serious: Yes (Other)
  Sender: FDA-Public Use
  Company Number: US-JNJFOC-20150606062

PATIENT
  Age: 22 Year
  Sex: Female
  Weight: 65.77 kg

DRUGS (4)
  1. ORTHO EVRA [Suspect]
     Active Substance: ETHINYL ESTRADIOL\NORELGESTROMIN
     Indication: CONTRACEPTION
     Route: 062
     Dates: start: 20150628, end: 20150701
  2. ORTHO EVRA [Suspect]
     Active Substance: ETHINYL ESTRADIOL\NORELGESTROMIN
     Indication: CONTRACEPTION
     Route: 062
     Dates: start: 201501, end: 2015
  3. HYDROXYCUT [Concomitant]
     Active Substance: HERBALS
     Route: 048
     Dates: start: 2012
  4. BIOTIN [Concomitant]
     Active Substance: BIOTIN
     Indication: HAIR GROWTH ABNORMAL
     Route: 048
     Dates: start: 2015

REACTIONS (12)
  - Pain [Unknown]
  - Muscle spasms [Not Recovered/Not Resolved]
  - Vaginal haemorrhage [Not Recovered/Not Resolved]
  - Withdrawal bleed [Recovered/Resolved]
  - Weight decreased [Not Recovered/Not Resolved]
  - Inappropriate schedule of drug administration [Recovered/Resolved]
  - Fatigue [Not Recovered/Not Resolved]
  - Muscle spasms [Unknown]
  - Nausea [Not Recovered/Not Resolved]
  - Nausea [Not Recovered/Not Resolved]
  - Abdominal pain upper [Unknown]
  - Headache [Not Recovered/Not Resolved]

NARRATIVE: CASE EVENT DATE: 2015
